FAERS Safety Report 9175222 (Version 2)
Quarter: 2013Q2

REPORT INFORMATION
  Report Type: Spontaneous
  Country: FR (occurrence: FR)
  Receive Date: 20130320
  Receipt Date: 20130419
  Transmission Date: 20140414
  Serious: Yes (Hospitalization)
  Sender: FDA-Public Use
  Company Number: FR-BRISTOL-MYERS SQUIBB COMPANY-17472200

PATIENT
  Age: 74 Year
  Sex: Male

DRUGS (3)
  1. KOMBOGLYZE [Suspect]
     Indication: TYPE 2 DIABETES MELLITUS
     Dates: start: 20130122, end: 20130204
  2. EUCREAS [Suspect]
     Indication: TYPE 2 DIABETES MELLITUS
     Dosage: 50 MG/1000 MG FILM-COATED TABLET ?TWO TABLETS DAILY
     Route: 048
     Dates: start: 201210, end: 20130204
  3. DAONIL [Suspect]
     Indication: TYPE 2 DIABETES MELLITUS
     Dosage: SCORED TABLET?1 TABLET DAILY
     Route: 048
     Dates: start: 2012, end: 20120204

REACTIONS (2)
  - Diarrhoea [Recovered/Resolved]
  - Renal failure [Recovered/Resolved]
